FAERS Safety Report 4455984-2 (Version None)
Quarter: 2004Q3

REPORT INFORMATION
  Report Type: 
  Country: None (occurrence: None)
  Receive Date: 20040922
  Receipt Date: 20040909
  Transmission Date: 20050211
  Serious: Yes (Life-Threatening, Hospitalization)
  Sender: FDA-Public Use
  Company Number: PT-GLAXOSMITHKLINE-B0345664A

PATIENT
  Age: 44 Year
  Sex: Male
  Weight: 63 kg

DRUGS (7)
  1. COMBIVIR [Suspect]
     Indication: HIV INFECTION
     Dosage: 900MG PER DAY
     Route: 048
     Dates: start: 20020101
  2. ISONIAZID [Suspect]
     Indication: PROPHYLAXIS
     Dosage: 300MG PER DAY
     Route: 048
     Dates: start: 20040503, end: 20040713
  3. NELFINAVIR MESYLATE [Suspect]
     Indication: HIV INFECTION
     Dosage: 2250MG PER DAY
     Route: 048
     Dates: start: 20020101
  4. MINOXIDIL [Concomitant]
     Dosage: 20MG PER DAY
     Route: 048
     Dates: start: 20020101
  5. CALCIUM CARBONATE [Concomitant]
     Route: 048
     Dates: start: 20020101
  6. FOLIC ACID [Concomitant]
     Dosage: 10MG PER DAY
     Route: 048
     Dates: start: 20020101
  7. VITAMIN B6 [Concomitant]
     Route: 048
     Dates: start: 20020101

REACTIONS (4)
  - DRUG INTERACTION [None]
  - HEPATOTOXICITY [None]
  - MENTAL DISORDER [None]
  - PSYCHOMOTOR AGITATION [None]
